FAERS Safety Report 4715694-0 (Version None)
Quarter: 2005Q2

REPORT INFORMATION
  Report Type: 
  Country: None (occurrence: None)
  Receive Date: 20050630
  Receipt Date: 20050422
  Transmission Date: 20051028
  Serious: No
  Sender: FDA-Public Use
  Company Number: 213972

PATIENT
  Age: 61 Year
  Sex: Male
  Weight: 77.1 kg

DRUGS (2)
  1. AVASTIN [Suspect]
     Indication: METASTATIC RENAL CELL CARCINOMA
     Dosage: 770 MG, Q2W, INTRAVENOUS
     Route: 042
     Dates: start: 20050217
  2. BENZONATATE [Concomitant]

REACTIONS (1)
  - HAEMATURIA [None]
